FAERS Safety Report 22209440 (Version 1)
Quarter: 2023Q2

REPORT INFORMATION
  Report Type: Report from Study
  Country: US (occurrence: US)
  Receive Date: 20230414
  Receipt Date: 20230414
  Transmission Date: 20230722
  Serious: Yes (Hospitalization)
  Sender: FDA-Public Use
  Company Number: US-ABBVIE-4333198

PATIENT
  Age: 72 Year
  Sex: Female

DRUGS (1)
  1. SKYRIZI [Suspect]
     Active Substance: RISANKIZUMAB-RZAA
     Indication: Crohn^s disease
     Route: 042
     Dates: start: 20230109, end: 20230209

REACTIONS (7)
  - Colitis [Not Recovered/Not Resolved]
  - Illness [Unknown]
  - Swelling [Not Recovered/Not Resolved]
  - Infection [Not Recovered/Not Resolved]
  - Psychotic disorder [Unknown]
  - Delirium [Unknown]
  - Disorientation [Unknown]

NARRATIVE: CASE EVENT DATE: 20230303
